FAERS Safety Report 14571221 (Version 6)
Quarter: 2018Q2

REPORT INFORMATION
  Report Type: Report from Study
  Country: None (occurrence: ES)
  Receive Date: 20180226
  Receipt Date: 20180515
  Transmission Date: 20180711
  Serious: Yes (Hospitalization, Other)
  Sender: FDA-Public Use
  Company Number: ES-ABBVIE-18K-144-2260179-00

PATIENT
  Age: 59 Year
  Sex: Male

DRUGS (5)
  1. DEPRAX (TRAZODONE HYDROCHLORIDE) [Suspect]
     Active Substance: TRAZODONE HYDROCHLORIDE
     Indication: PRODUCT USED FOR UNKNOWN INDICATION
     Route: 048
  2. NOLOTIL (METAMIZOLE MAGNESIUM) [Suspect]
     Active Substance: METAMIZOLE MAGNESIUM
     Indication: PRODUCT USED FOR UNKNOWN INDICATION
     Dosage: 2-3 DAILY
     Route: 065
     Dates: start: 201804
  3. STALEVO [Suspect]
     Active Substance: CARBIDOPA\ENTACAPONE\LEVODOPA
     Indication: PRODUCT USED FOR UNKNOWN INDICATION
     Route: 048
  4. DUODOPA [Suspect]
     Active Substance: CARBIDOPA\LEVODOPA
     Indication: PARKINSON^S DISEASE
     Dosage: 1.5 CARTRIDGE PER DAY
     Route: 050
     Dates: start: 20160331
  5. STILNOX [Suspect]
     Active Substance: ZOLPIDEM TARTRATE
     Indication: PRODUCT USED FOR UNKNOWN INDICATION
     Route: 048

REACTIONS (13)
  - Pleural effusion [Recovering/Resolving]
  - Systolic dysfunction [Unknown]
  - Malaise [Recovering/Resolving]
  - Procedural anxiety [Not Recovered/Not Resolved]
  - Sudden onset of sleep [Recovered/Resolved]
  - On and off phenomenon [Recovering/Resolving]
  - Aortic stenosis [Recovering/Resolving]
  - Aortic valve calcification [Recovering/Resolving]
  - Mania [Recovering/Resolving]
  - Nasopharyngitis [Unknown]
  - Hypotension [Not Recovered/Not Resolved]
  - Procedural pain [Recovering/Resolving]
  - Pulmonary hypertension [Unknown]

NARRATIVE: CASE EVENT DATE: 2018
